APPROVED DRUG PRODUCT: VIVACTIL
Active Ingredient: PROTRIPTYLINE HYDROCHLORIDE
Strength: 5MG **Federal Register determination that product was not discontinued or withdrawn for safety or effectiveness reasons**
Dosage Form/Route: TABLET;ORAL
Application: N016012 | Product #001
Applicant: TEVA WOMENS HEALTH INC
Approved: Approved Prior to Jan 1, 1982 | RLD: No | RS: No | Type: DISCN